FAERS Safety Report 17369438 (Version 2)
Quarter: 2020Q3

REPORT INFORMATION
  Report Type: Report from Study
  Country: MY (occurrence: MY)
  Receive Date: 20200131
  Receipt Date: 20200312
  Transmission Date: 20201104
  Serious: Yes (Hospitalization)
  Sender: FDA-Public Use
  Company Number: MY-ALEXION PHARMACEUTICALS INC.-A202000866

PATIENT
  Age: 24 Year
  Sex: Male
  Weight: 91 kg

DRUGS (6)
  1. RAVULIZUMAB. [Suspect]
     Active Substance: RAVULIZUMAB
     Indication: PAROXYSMAL NOCTURNAL HAEMOGLOBINURIA
     Dosage: 2700 MG, UNK
     Route: 042
     Dates: start: 20170704
  2. PENICILLIN V                       /00001801/ [Concomitant]
     Active Substance: PENICILLIN V
     Dosage: 500 MG, QID
     Route: 048
     Dates: start: 20200202, end: 20200206
  3. PENICILLIN V                       /00001801/ [Concomitant]
     Active Substance: PENICILLIN V
     Indication: INFECTION PROPHYLAXIS
     Dosage: 500 MG, BID
     Route: 048
     Dates: start: 20170704, end: 20200201
  4. RAVULIZUMAB. [Suspect]
     Active Substance: RAVULIZUMAB
     Dosage: 3300 MG, UNK
     Route: 042
     Dates: start: 20191226
  5. FOLATE [Concomitant]
     Active Substance: FOLATE SODIUM
     Indication: SUPPLEMENTATION THERAPY
     Dosage: 5 MG, QD
     Route: 048
     Dates: start: 20160413
  6. ASPIRIN                            /00002701/ [Concomitant]
     Active Substance: ASPIRIN
     Indication: THROMBOSIS PROPHYLAXIS
     Dosage: 75 MG, QD
     Route: 048
     Dates: start: 20160511

REACTIONS (1)
  - Gastroenteritis [Recovered/Resolved]

NARRATIVE: CASE EVENT DATE: 20200107
